FAERS Safety Report 17097378 (Version 1)
Quarter: 2019Q4

REPORT INFORMATION
  Report Type: Spontaneous
  Country: US (occurrence: US)
  Receive Date: 20191202
  Receipt Date: 20191202
  Transmission Date: 20200122
  Serious: No
  Sender: FDA-Public Use
  Company Number: US-GLAXOSMITHKLINE-US2019215151

PATIENT
  Age: 75 Year
  Sex: Female

DRUGS (1)
  1. DICLOFENAC SODIUM GEL [Suspect]
     Active Substance: DICLOFENAC SODIUM
     Indication: FOOT FRACTURE
     Dosage: 1 APPLICATION, UNK
     Dates: start: 20191122

REACTIONS (6)
  - Application site erythema [Unknown]
  - Product use in unapproved indication [Unknown]
  - Application site rash [Unknown]
  - Off label use [Unknown]
  - Peripheral swelling [Unknown]
  - Wrong technique in product usage process [Unknown]

NARRATIVE: CASE EVENT DATE: 20191122
